FAERS Safety Report 11768380 (Version 1)
Quarter: 2015Q4

REPORT INFORMATION
  Report Type: Report from Study
  Country: TW (occurrence: TW)
  Receive Date: 20151123
  Receipt Date: 20151123
  Transmission Date: 20160304
  Serious: Yes (Other)
  Sender: FDA-Public Use
  Company Number: TW-JNJFOC-20151113321

PATIENT
  Age: 51 Year
  Sex: Male
  Weight: 73 kg

DRUGS (13)
  1. CATAFLAM [Concomitant]
     Active Substance: DICLOFENAC POTASSIUM
     Route: 003
     Dates: start: 20150918, end: 20150921
  2. ZADITEN [Concomitant]
     Active Substance: KETOTIFEN FUMARATE
     Route: 003
     Dates: start: 20151012, end: 20151016
  3. HOMOCHLORCYCLIZINE [Concomitant]
     Active Substance: HOMOCHLORCYCLIZINE
     Route: 003
     Dates: start: 20150107
  4. METHOTREXATE [Concomitant]
     Active Substance: METHOTREXATE
     Route: 003
     Dates: start: 20150909, end: 20150930
  5. XAMIOL [Concomitant]
     Active Substance: BETAMETHASONE DIPROPIONATE\CALCIPOTRIENE HYDRATE
     Route: 061
     Dates: start: 20150325
  6. METHOTREXATE [Concomitant]
     Active Substance: METHOTREXATE
     Route: 003
     Dates: start: 20150819, end: 20150909
  7. CLOBETASOL PROPIONATE. [Concomitant]
     Active Substance: CLOBETASOL PROPIONATE
     Route: 061
     Dates: start: 20141231
  8. OXETACAINE [Concomitant]
     Active Substance: OXETHAZAINE
     Route: 003
     Dates: start: 20150918, end: 20150921
  9. STELARA [Suspect]
     Active Substance: USTEKINUMAB
     Indication: PSORIASIS
     Dosage: 0, 4, 12 WEEK
     Route: 058
     Dates: start: 20150225, end: 20150617
  10. SILYMARIN [Concomitant]
     Active Substance: MILK THISTLE
     Route: 003
     Dates: start: 20150403
  11. FOLIC ACID. [Concomitant]
     Active Substance: FOLIC ACID
     Route: 065
     Dates: start: 20150909
  12. SINBABY [Concomitant]
     Route: 061
     Dates: start: 20150422
  13. SPORANOX [Concomitant]
     Active Substance: ITRACONAZOLE
     Route: 065
     Dates: start: 20150805

REACTIONS (8)
  - Atelectasis [Unknown]
  - Hepatocellular carcinoma [Not Recovered/Not Resolved]
  - Spinal osteoarthritis [Unknown]
  - Splenomegaly [Unknown]
  - Cholelithiasis [Unknown]
  - Hepatic cirrhosis [Unknown]
  - Portal vein thrombosis [Unknown]
  - Renal cyst [Unknown]

NARRATIVE: CASE EVENT DATE: 20150309
